FAERS Safety Report 14279609 (Version 2)
Quarter: 2017Q4

REPORT INFORMATION
  Report Type: Spontaneous
  Country: DE (occurrence: DE)
  Receive Date: 20171212
  Receipt Date: 20171229
  Transmission Date: 20180321
  Serious: No
  Sender: FDA-Public Use
  Company Number: DE-TEVA-2017-DE-829156

PATIENT
  Sex: Male

DRUGS (4)
  1. EMEND [Concomitant]
     Active Substance: APREPITANT
     Dosage: 80 MILLIGRAM DAILY; DAY 2 AND 3: 80MG
     Route: 048
  2. ONDANSETRON [Concomitant]
     Active Substance: ONDANSETRON
     Dosage: 8 MILLIGRAM DAILY; ON THERAPY DAY
     Route: 048
  3. CISPLATIN TEVA 1 MG/ML KONZENTRAT [Suspect]
     Active Substance: CISPLATIN
     Indication: CERVIX CARCINOMA
     Dosage: THREE ADMINISTRATIONS IN TOTAL: 20-OCT-2017, 03-NOV-2017, 17-NOV-2017
     Dates: start: 20171020, end: 20171117
  4. EMEND [Concomitant]
     Active Substance: APREPITANT
     Dosage: 125 MILLIGRAM DAILY; DAY 1: 125MG
     Route: 048

REACTIONS (4)
  - Foetal exposure during pregnancy [Unknown]
  - Neonatal disorder [Unknown]
  - Premature baby [Unknown]
  - Live birth [Unknown]

NARRATIVE: CASE EVENT DATE: 2017
